FAERS Safety Report 7012023-7 (Version None)
Quarter: 2010Q3

REPORT INFORMATION
  Report Type: 
  Country: None (occurrence: None)
  Receive Date: 20100924
  Receipt Date: 20100918
  Transmission Date: 20110219
  Serious: Yes (Hospitalization)
  Sender: FDA-Public Use
  Company Number: US-RB-015170-10

PATIENT
  Age: 56 Year
  Sex: Female

DRUGS (1)
  1. SUBOXONE [Suspect]
     Indication: PRODUCT USED FOR UNKNOWN INDICATION
     Dosage: DOSING DETAILS UNKNOWN.
     Route: 065

REACTIONS (8)
  - ACNE [None]
  - ASTHENIA [None]
  - COLLAPSE OF LUNG [None]
  - DRUG WITHDRAWAL SYNDROME [None]
  - NODULE [None]
  - PARANOIA [None]
  - SINUSITIS [None]
  - SKIN WRINKLING [None]
